FAERS Safety Report 5134689-9 (Version None)
Quarter: 2006Q4

REPORT INFORMATION
  Report Type: 
  Country: None (occurrence: None)
  Receive Date: 20061025
  Receipt Date: 20060620
  Transmission Date: 20070319
  Serious: Yes (Hospitalization)
  Sender: FDA-Public Use
  Company Number: US-AMGEN-US193551

PATIENT
  Sex: Female
  Weight: 63.1 kg

DRUGS (5)
  1. ENBREL [Suspect]
     Indication: RHEUMATOID ARTHRITIS
     Route: 058
     Dates: start: 19981101
  2. METHOTREXATE SODIUM [Concomitant]
     Route: 065
  3. MOBIC [Concomitant]
  4. NORVASC [Concomitant]
  5. ULTRAM [Concomitant]

REACTIONS (10)
  - ARTHRALGIA [None]
  - DARK CIRCLES UNDER EYES [None]
  - DRY SKIN [None]
  - FATIGUE [None]
  - FEMORAL NECK FRACTURE [None]
  - INJECTION SITE BRUISING [None]
  - JOINT SWELLING [None]
  - MUSCLE SPASMS [None]
  - OSTEOARTHRITIS [None]
  - SKIN EXFOLIATION [None]
